FAERS Safety Report 24705945 (Version 1)
Quarter: 2024Q4

REPORT INFORMATION
  Report Type: Spontaneous
  Country: US (occurrence: None)
  Receive Date: 20241205
  Receipt Date: 20241205
  Transmission Date: 20250114
  Serious: Yes (Death)
  Sender: Public
  Company Number: None

PATIENT
  Age: 70 Year
  Sex: Female
  Weight: 80 kg

DRUGS (5)
  1. TEMOZOLOMIDE [Suspect]
     Active Substance: TEMOZOLOMIDE
     Indication: Neoplasm malignant
     Dosage: 1 CAPSULE DILY ORAL
     Route: 048
     Dates: start: 20240619, end: 20241111
  2. TEMOZOLOMIDE [Suspect]
     Active Substance: TEMOZOLOMIDE
     Indication: Neoplasm malignant
     Dosage: 1 CPSULE DAILY ORAL
     Route: 048
     Dates: start: 20240619, end: 20241111
  3. ZOFRAN [Concomitant]
     Active Substance: ONDANSETRON HYDROCHLORIDE
  4. PANTOPRAZOLE [Concomitant]
     Active Substance: PANTOPRAZOLE
  5. PHENYTOIN [Concomitant]
     Active Substance: PHENYTOIN

REACTIONS (1)
  - Hospice care [None]

NARRATIVE: CASE EVENT DATE: 20241204
